FAERS Safety Report 25198279 (Version 1)
Quarter: 2025Q2

REPORT INFORMATION
  Report Type: Report from Study
  Country: FR (occurrence: FR)
  Receive Date: 20250415
  Receipt Date: 20250415
  Transmission Date: 20250716
  Serious: Yes (Hospitalization, Other)
  Sender: Norvium Bioscience
  Company Number: FR-Norvium Bioscience LLC-080017

PATIENT
  Age: 33 Year
  Sex: Male

DRUGS (2)
  1. PREGABALIN [Suspect]
     Active Substance: PREGABALIN
     Indication: Pain
     Dosage: AFTER DOSE ESCALATION REACHING TO 8400 MG/DAY
  2. GABAPENTIN [Suspect]
     Active Substance: GABAPENTIN
     Indication: Drug use disorder

REACTIONS (4)
  - Emotional distress [Unknown]
  - Drug dependence [Unknown]
  - Anxiety [Unknown]
  - Drug use disorder [Unknown]
